FAERS Safety Report 5921816-6 (Version None)
Quarter: 2008Q4

REPORT INFORMATION
  Report Type: 
  Country: None (occurrence: None)
  Receive Date: 20081017
  Receipt Date: 20081009
  Transmission Date: 20090506
  Serious: Yes (Disabling)
  Sender: FDA-Public Use
  Company Number: AU-WYE-G02328608

PATIENT
  Sex: Female

DRUGS (2)
  1. EFFEXOR XR [Suspect]
     Indication: DEPRESSION
     Dosage: 75 MG
     Route: 048
  2. EFFEXOR XR [Suspect]
     Dosage: UNKNOWN
     Route: 048

REACTIONS (5)
  - DRUG EFFECT DECREASED [None]
  - DRUG INTOLERANCE [None]
  - FLUSHING [None]
  - IMPAIRED WORK ABILITY [None]
  - RESTLESSNESS [None]
